FAERS Safety Report 23179175 (Version 2)
Quarter: 2023Q4

REPORT INFORMATION
  Report Type: Spontaneous
  Country: DE (occurrence: DE)
  Receive Date: 20231113
  Receipt Date: 20231201
  Transmission Date: 20240109
  Serious: Yes (Other)
  Sender: FDA-Public Use
  Company Number: DE-NOVOPROD-1138757

PATIENT
  Sex: Female

DRUGS (2)
  1. TRESIBA [Suspect]
     Active Substance: INSULIN DEGLUDEC
     Indication: Product used for unknown indication
     Dosage: 150 IU
  2. TRESIBA [Suspect]
     Active Substance: INSULIN DEGLUDEC
     Dosage: UNK (RESTARTED)

REACTIONS (1)
  - Suicide attempt [Unknown]
